FAERS Safety Report 8488968-8 (Version None)
Quarter: 2012Q3

REPORT INFORMATION
  Report Type: 
  Country: None (occurrence: None)
  Receive Date: 20120705
  Receipt Date: 20120702
  Transmission Date: 20120928
  Serious: No
  Sender: FDA-Public Use
  Company Number: US-PFIZER INC-2012159091

PATIENT
  Sex: Male
  Weight: 112 kg

DRUGS (7)
  1. VIAGRA [Suspect]
     Dosage: 100 MG, AS NEEDED
     Dates: end: 20110501
  2. TRIAMTERENE AND HYDROCHLOROTHIAZIDE [Concomitant]
     Dosage: 37.5/25MG X4 TABLET DIALY
  3. VIAGRA [Suspect]
     Indication: ERECTILE DYSFUNCTION
     Dosage: 50 MG, AS NEEDED
     Dates: start: 20111001
  4. GLIPIZIDE [Concomitant]
     Indication: DIABETES MELLITUS
     Dosage: 5 MG, DAILY
  5. AMLODIPINE [Concomitant]
     Indication: CEREBROVASCULAR ACCIDENT PROPHYLAXIS
     Dosage: 10 MG, DAILY
  6. ATENOLOL [Concomitant]
     Indication: CEREBROVASCULAR ACCIDENT PROPHYLAXIS
     Dosage: 50 MG, DAILY
  7. ATENOLOL [Concomitant]
     Indication: BLOOD PRESSURE ABNORMAL

REACTIONS (1)
  - DRUG INEFFECTIVE [None]
